FAERS Safety Report 15888614 (Version 1)
Quarter: 2019Q1

REPORT INFORMATION
  Report Type: Spontaneous
  Country: US (occurrence: US)
  Receive Date: 20190129
  Receipt Date: 20190129
  Transmission Date: 20190417
  Serious: Yes (Hospitalization)
  Sender: FDA-Public Use
  Company Number: None

PATIENT
  Age: 53 Year
  Sex: Female
  Weight: 99.1 kg

DRUGS (1)
  1. IOHEXOL [Suspect]
     Active Substance: IOHEXOL
     Route: 042

REACTIONS (4)
  - Flushing [None]
  - Dyspnoea [None]
  - Contrast media reaction [None]
  - Vomiting [None]

NARRATIVE: CASE EVENT DATE: 20181009
